FAERS Safety Report 7765080-4 (Version None)
Quarter: 2011Q3

REPORT INFORMATION
  Report Type: 
  Country: None (occurrence: None)
  Receive Date: 20110921
  Receipt Date: 20110915
  Transmission Date: 20111222
  Serious: Yes (Hospitalization)
  Sender: FDA-Public Use
  Company Number: CN-ROCHE-802783

PATIENT
  Sex: Female

DRUGS (3)
  1. HERCEPTIN [Suspect]
     Route: 065
     Dates: start: 20110401
  2. GEMCITABINE [Concomitant]
     Dates: start: 20110401
  3. XELODA [Suspect]
     Route: 065
     Dates: start: 20110401

REACTIONS (1)
  - METASTASES TO SKIN [None]
